FAERS Safety Report 6921989-2 (Version None)
Quarter: 2010Q3

REPORT INFORMATION
  Report Type: 
  Country: None (occurrence: None)
  Receive Date: 20100812
  Receipt Date: 20100729
  Transmission Date: 20110219
  Serious: Yes (Life-Threatening, Hospitalization, Other)
  Sender: FDA-Public Use
  Company Number: DE-MYLANLABS-2010S1010808

PATIENT
  Age: 89 Year
  Sex: Male
  Weight: 92 kg

DRUGS (3)
  1. SIMVASTATIN [Suspect]
     Indication: PRODUCT USED FOR UNKNOWN INDICATION
     Dosage: 1X 0.5 TABLET AT 80 MG DAILY PER OS
     Route: 048
     Dates: start: 20080101, end: 20100401
  2. CORDAREX [Suspect]
     Indication: PRODUCT USED FOR UNKNOWN INDICATION
     Route: 048
     Dates: start: 20000101
  3. CORDAREX [Suspect]
     Route: 048
     Dates: start: 20100306, end: 20100313

REACTIONS (1)
  - RENAL FAILURE ACUTE [None]
